FAERS Safety Report 24082437 (Version 1)
Quarter: 2024Q3

REPORT INFORMATION
  Report Type: Report from Study
  Country: EG (occurrence: EG)
  Receive Date: 20240712
  Receipt Date: 20240712
  Transmission Date: 20241016
  Serious: Yes (Other)
  Sender: SANDOZ
  Company Number: EG-SANDOZ-SDZ2024EG007127

PATIENT
  Age: 16 Year
  Sex: Male
  Weight: 38 kg

DRUGS (2)
  1. OMNITROPE [Suspect]
     Active Substance: SOMATROPIN
     Indication: Short stature
     Dosage: 21 UNIT PER DAY BY INSULIN SYRINGE
     Route: 058
     Dates: start: 202402, end: 202403
  2. OMNITROPE [Suspect]
     Active Substance: SOMATROPIN
     Indication: Growth hormone deficiency

REACTIONS (6)
  - Contusion [Unknown]
  - Pain [Unknown]
  - Mental disorder [Unknown]
  - Product dose omission issue [Unknown]
  - Wrong device used [Unknown]
  - Off label use [Unknown]

NARRATIVE: CASE EVENT DATE: 20240201
